FAERS Safety Report 25092329 (Version 1)
Quarter: 2025Q1

REPORT INFORMATION
  Report Type: Spontaneous
  Country: CA (occurrence: CA)
  Receive Date: 20250319
  Receipt Date: 20250319
  Transmission Date: 20250409
  Serious: Yes (Other)
  Sender: CHEPLAPHARM
  Company Number: CA-CHEPLA-2025003364

PATIENT
  Sex: Female

DRUGS (3)
  1. CLONAZEPAM [Suspect]
     Active Substance: CLONAZEPAM
     Indication: Product used for unknown indication
  2. HULIO [Suspect]
     Active Substance: ADALIMUMAB-FKJP
     Indication: Psoriatic arthropathy
     Route: 058
  3. HULIO [Suspect]
     Active Substance: ADALIMUMAB-FKJP
     Indication: Psoriatic arthropathy
     Route: 058

REACTIONS (16)
  - Arthralgia [Unknown]
  - Crying [Unknown]
  - Depressed mood [Unknown]
  - Device mechanical issue [Unknown]
  - Drug interaction [Unknown]
  - Fear [Unknown]
  - Gait inability [Unknown]
  - Illness [Unknown]
  - Monoplegia [Unknown]
  - Osteoarthritis [Unknown]
  - Pain [Unknown]
  - Post-traumatic stress disorder [Unknown]
  - Suicidal ideation [Unknown]
  - Victim of sexual abuse [Unknown]
  - Product dose omission issue [Unknown]
  - Treatment noncompliance [Unknown]
